FAERS Safety Report 6859804-8 (Version None)
Quarter: 2010Q3

REPORT INFORMATION
  Report Type: 
  Country: None (occurrence: None)
  Receive Date: 20100720
  Receipt Date: 20100704
  Transmission Date: 20110219
  Serious: Yes (Hospitalization, Other)
  Sender: FDA-Public Use
  Company Number: US-BAYER-200929530NA

PATIENT
  Age: 43 Year
  Sex: Female
  Weight: 68 kg

DRUGS (15)
  1. YAZ [Suspect]
     Indication: CONTRACEPTION
     Route: 048
     Dates: start: 20071101, end: 20080601
  2. LEVOTHYROXINE SODIUM [Concomitant]
     Indication: THYROID DISORDER
     Dates: start: 20060712, end: 20090610
  3. EFFEXOR XR [Concomitant]
     Dates: start: 20060628, end: 20090618
  4. MELOXICAM [Concomitant]
     Dates: start: 20070713, end: 20090618
  5. HYDROCODONE / ACET [Concomitant]
     Dosage: 1 TABLET 3 TO 4 TIMES DAILY 5/500
     Route: 048
     Dates: start: 20080613
  6. AVALIDE [Concomitant]
     Dosage: 150/12.5
     Dates: start: 20040928, end: 20070722
  7. METFORMIN HCL [Concomitant]
     Route: 048
     Dates: start: 20070108, end: 20080204
  8. ZETIA [Concomitant]
  9. SIMVASTATIN [Concomitant]
  10. IRBASARTEN [Concomitant]
  11. TRICOR [Concomitant]
  12. ARTHROTEC [Concomitant]
     Dates: start: 20091101
  13. CEFPRODOXIME [Concomitant]
     Dates: start: 20080701
  14. OXAPROZIN [Concomitant]
     Dates: start: 20060501, end: 20060701
  15. ETODOLAC SA [Concomitant]
     Dates: start: 20051201

REACTIONS (7)
  - CHEST PAIN [None]
  - DEEP VEIN THROMBOSIS [None]
  - DYSPNOEA [None]
  - MENTAL DISORDER [None]
  - PAIN [None]
  - PULMONARY EMBOLISM [None]
  - PULMONARY INFARCTION [None]
